FAERS Safety Report 8041619-9 (Version None)
Quarter: 2012Q1

REPORT INFORMATION
  Report Type: 
  Country: None (occurrence: None)
  Receive Date: 20120112
  Receipt Date: 20120109
  Transmission Date: 20120608
  Serious: Yes (Hospitalization, Other)
  Sender: FDA-Public Use
  Company Number: US-JNJFOC-20120102882

PATIENT
  Sex: Female
  Weight: 86.18 kg

DRUGS (4)
  1. PANCREAZE [Suspect]
     Dosage: 2 AT EACH MEAL
     Route: 048
     Dates: start: 20090101
  2. CHEMOTHERAPEUTICS NOS [Suspect]
     Indication: NEOPLASM MALIGNANT
     Route: 042
     Dates: start: 20111101
  3. PANCREAZE [Suspect]
     Dosage: 3 AT EACH MEAL
     Route: 048
     Dates: end: 20110501
  4. PANCREAZE [Suspect]
     Indication: WHIPPLE'S DISEASE
     Dosage: 4 AT EACH MEAL, 2 AT EACH SNACK
     Route: 048
     Dates: start: 20110501

REACTIONS (4)
  - WEIGHT DECREASED [None]
  - ASTHENIA [None]
  - TYPE 1 DIABETES MELLITUS [None]
  - ARTHRALGIA [None]
